FAERS Safety Report 7960606-X (Version None)
Quarter: 2011Q4

REPORT INFORMATION
  Report Type: 
  Country: None (occurrence: None)
  Receive Date: 20111206
  Receipt Date: 20111201
  Transmission Date: 20120403
  Serious: Yes (Disabling, Other)
  Sender: FDA-Public Use
  Company Number: US-MERCK-1108USA01354

PATIENT
  Age: 47 Year
  Sex: Female

DRUGS (3)
  1. FOSAMAX [Suspect]
     Route: 048
     Dates: start: 20060101, end: 20090101
  2. FOSAMAX [Suspect]
     Indication: OSTEOPOROSIS
     Route: 048
     Dates: start: 20010101, end: 20040101
  3. FOSAMAX PLUS D [Suspect]
     Indication: OSTEOPOROSIS
     Route: 048
     Dates: start: 20090101, end: 20100101

REACTIONS (23)
  - PERIODONTAL DISEASE [None]
  - PAIN [None]
  - BLOOD CHOLESTEROL INCREASED [None]
  - DEPRESSION [None]
  - FISTULA DISCHARGE [None]
  - TOOTHACHE [None]
  - TOOTH FRACTURE [None]
  - ORAL DISORDER [None]
  - PAIN IN EXTREMITY [None]
  - DENTAL CARIES [None]
  - HEADACHE [None]
  - FOOT FRACTURE [None]
  - OSTEONECROSIS OF JAW [None]
  - ANXIETY [None]
  - EXOSTOSIS [None]
  - GINGIVAL BLEEDING [None]
  - ORAL TORUS [None]
  - CHEST PAIN [None]
  - CHRONIC OBSTRUCTIVE PULMONARY DISEASE [None]
  - ROAD TRAFFIC ACCIDENT [None]
  - ORAL INFECTION [None]
  - TOOTH DISORDER [None]
  - STOMATITIS [None]
